FAERS Safety Report 8486345-7 (Version None)
Quarter: 2012Q3

REPORT INFORMATION
  Report Type: 
  Country: None (occurrence: None)
  Receive Date: 20120703
  Receipt Date: 20120625
  Transmission Date: 20120928
  Serious: Yes (Life-Threatening, Disabling)
  Sender: FDA-Public Use
  Company Number: US-GLAXOSMITHKLINE-A0982467A

PATIENT
  Sex: Female

DRUGS (3)
  1. LAMICTAL [Suspect]
     Indication: MAJOR DEPRESSION
     Dosage: 200MG UNKNOWN
     Route: 048
  2. ADDERALL 5 [Concomitant]
  3. VYVANSE [Concomitant]

REACTIONS (17)
  - RHINITIS [None]
  - HEADACHE [None]
  - COUGH [None]
  - HIRSUTISM [None]
  - DYSPHONIA [None]
  - SUICIDAL IDEATION [None]
  - INSOMNIA [None]
  - DRY MOUTH [None]
  - CONSTIPATION [None]
  - EUSTACHIAN TUBE DYSFUNCTION [None]
  - EYE DISORDER [None]
  - SLEEP APNOEA SYNDROME [None]
  - LOOSE TOOTH [None]
  - POLYCYSTIC OVARIES [None]
  - ALOPECIA [None]
  - ILL-DEFINED DISORDER [None]
  - ABDOMINAL PAIN [None]
